FAERS Safety Report 6776272-5 (Version None)
Quarter: 2010Q2

REPORT INFORMATION
  Report Type: 
  Country: None (occurrence: None)
  Receive Date: 20100617
  Receipt Date: 20100610
  Transmission Date: 20101027
  Serious: Yes (Hospitalization, Other)
  Sender: FDA-Public Use
  Company Number: US-AMGEN-QUU417589

PATIENT
  Sex: Female

DRUGS (15)
  1. EPOGEN [Suspect]
     Indication: DIALYSIS
     Route: 042
     Dates: start: 20090401
  2. MULTIPLE VITAMINS [Concomitant]
  3. METOPROLOL [Concomitant]
  4. RENALTABS [Concomitant]
  5. EMLA [Concomitant]
     Route: 061
  6. FENTANYL [Concomitant]
  7. ASPIRIN [Concomitant]
  8. TRAMADOL [Concomitant]
  9. VENTOLIN [Concomitant]
     Route: 055
  10. ATROVENT [Concomitant]
     Route: 055
  11. COLACE [Concomitant]
  12. GABAPENTIN [Concomitant]
  13. CALCIUM ACETATE [Concomitant]
  14. HEPARIN [Concomitant]
     Route: 042
  15. ZEMPLAR [Concomitant]
     Route: 042

REACTIONS (5)
  - BLOOD ALBUMIN DECREASED [None]
  - HAEMOGLOBIN DECREASED [None]
  - OVERWEIGHT [None]
  - THERAPEUTIC RESPONSE DECREASED [None]
  - WOUND [None]
